FAERS Safety Report 6244450-X (Version None)
Quarter: 2009Q2

REPORT INFORMATION
  Report Type: 
  Country: None (occurrence: None)
  Receive Date: 20090623
  Receipt Date: 20090623
  Transmission Date: 20091009
  Serious: Yes (Hospitalization)
  Sender: FDA-Public Use
  Company Number: None

PATIENT
  Sex: Female
  Weight: 65.3 kg

DRUGS (6)
  1. CYCLOPHOSPHAMIDE [Suspect]
     Dosage: 3420 MG
     Dates: end: 20090415
  2. CYTARABINE [Suspect]
     Dosage: 2080 MG
     Dates: end: 20090425
  3. MERCAPTOPURINE [Suspect]
     Dosage: 2825 MG
     Dates: end: 20090428
  4. METHOTREXATE [Suspect]
     Dosage: 60 MG
     Dates: end: 20090401
  5. ONCASPAR [Suspect]
     Dosage: 8500 IU
     Dates: end: 20090429
  6. VINCRISTINE SULFATE [Suspect]
     Dosage: 8 MG
     Dates: end: 20090506

REACTIONS (4)
  - BLOOD GLUCOSE FLUCTUATION [None]
  - HYPERBILIRUBINAEMIA [None]
  - HYPERGLYCAEMIA [None]
  - SEPSIS [None]
